FAERS Safety Report 7862756-5 (Version None)
Quarter: 2011Q4

REPORT INFORMATION
  Report Type: 
  Country: None (occurrence: None)
  Receive Date: 20111027
  Receipt Date: 20101112
  Transmission Date: 20120403
  Serious: No
  Sender: FDA-Public Use
  Company Number: US-AMGEN-USASP2010004912

PATIENT
  Sex: Female

DRUGS (8)
  1. SINGULAIR [Concomitant]
     Dosage: 10 MG, UNK
  2. ENBREL [Suspect]
     Indication: PRODUCT USED FOR UNKNOWN INDICATION
     Dosage: 50 MG, QWK
     Route: 058
  3. CETIRIZINE HCL [Concomitant]
     Dosage: 5 MG, UNK
  4. VICODIN [Concomitant]
     Dosage: 500 MG, UNK
  5. SYNTHROID [Concomitant]
     Dosage: 88 MG, UNK
  6. LIPITOR [Concomitant]
     Dosage: 10 MG, UNK
  7. ADVAIR DISKUS 100/50 [Concomitant]
     Dosage: UNK
  8. COMBIVENT [Concomitant]

REACTIONS (4)
  - UPPER RESPIRATORY TRACT INFECTION [None]
  - IMPAIRED HEALING [None]
  - DRY SKIN [None]
  - SKIN DISORDER [None]
